FAERS Safety Report 5140215-0 (Version None)
Quarter: 2006Q4

REPORT INFORMATION
  Report Type: 
  Country: None (occurrence: None)
  Receive Date: 20061031
  Receipt Date: 20061025
  Transmission Date: 20070319
  Serious: Yes (Life-Threatening)
  Sender: FDA-Public Use
  Company Number: ES-BRACCO-BRO-010787

PATIENT
  Age: 57 Year
  Sex: Male
  Weight: 95 kg

DRUGS (1)
  1. PROHANCE [Suspect]
     Route: 050
     Dates: start: 20060703, end: 20060703

REACTIONS (5)
  - AMNESIA [None]
  - BRONCHOSPASM [None]
  - CONJUNCTIVAL HYPERAEMIA [None]
  - LOSS OF CONSCIOUSNESS [None]
  - URTICARIA GENERALISED [None]
